FAERS Safety Report 6326204-9 (Version None)
Quarter: 2009Q3

REPORT INFORMATION
  Report Type: 
  Country: None (occurrence: None)
  Receive Date: 20090824
  Receipt Date: 20090810
  Transmission Date: 20100115
  Serious: Yes (Hospitalization)
  Sender: FDA-Public Use
  Company Number: DE-MYLANLABS-2009S1014351

PATIENT
  Age: 80 Year
  Sex: Female
  Weight: 59 kg

DRUGS (15)
  1. MTX /00113801/ [Suspect]
     Indication: RHEUMATOID ARTHRITIS
     Route: 058
     Dates: start: 20081101, end: 20090504
  2. DELIX [Interacting]
     Indication: HYPERTENSION
     Route: 048
     Dates: start: 20000101
  3. FALITHROM [Interacting]
     Indication: TACHYARRHYTHMIA
     Route: 048
     Dates: start: 20081101, end: 20090504
  4. SIMVAHEXAL [Interacting]
     Indication: HYPERLIPIDAEMIA
     Route: 048
     Dates: start: 20081101, end: 20090505
  5. SEROQUEL [Interacting]
     Indication: RESTLESSNESS
     Route: 048
     Dates: start: 20081101
  6. CORDANUM [Interacting]
     Indication: TACHYARRHYTHMIA
     Route: 048
     Dates: start: 20081101, end: 20090504
  7. TORASEMIDE [Interacting]
     Indication: HYPERTENSION
     Route: 048
     Dates: start: 20081101
  8. OMEPRAZOLE [Interacting]
     Indication: PROPHYLAXIS AGAINST GASTROINTESTINAL ULCER
     Route: 048
     Dates: start: 20081101, end: 20090503
  9. AMLODIPINE [Interacting]
     Indication: HYPERTENSION
     Route: 048
     Dates: start: 20081101, end: 20090515
  10. PREDNISOLONE [Concomitant]
     Indication: RHEUMATOID ARTHRITIS
     Route: 048
     Dates: start: 20020101
  11. ACTONEL [Concomitant]
     Indication: OSTEOPOROSIS
     Dosage: 1DF= 35MG RISEDRONSAURE + 1000MG CALCIUM + 880 IU VIT.D
     Route: 048
     Dates: start: 20040101, end: 20090505
  12. XIPAMIDE [Concomitant]
     Indication: HYPERTENSION
     Route: 048
     Dates: start: 20081101, end: 20090503
  13. DIGITOXIN [Concomitant]
     Indication: TACHYARRHYTHMIA
     Route: 048
     Dates: start: 20081101
  14. FOLIC ACID [Concomitant]
     Indication: IMMUNOSUPPRESSANT DRUG THERAPY
     Route: 048
     Dates: start: 20081101, end: 20090504
  15. DREISAFER [Concomitant]
     Indication: IRON DEFICIENCY
     Route: 048
     Dates: start: 20081101, end: 20090504

REACTIONS (3)
  - ALVEOLITIS [None]
  - DRUG INTERACTION [None]
  - TRANSAMINASES INCREASED [None]
